FAERS Safety Report 5164271-9 (Version None)
Quarter: 2006Q4

REPORT INFORMATION
  Report Type: 
  Country: None (occurrence: None)
  Receive Date: 20061205
  Receipt Date: 20061128
  Transmission Date: 20070319
  Serious: Yes (Other)
  Sender: FDA-Public Use
  Company Number: US-JNJFOC-20061007100

PATIENT
  Sex: Male
  Weight: 97.52 kg

DRUGS (9)
  1. REMICADE [Suspect]
     Dosage: WK 0,2,6, + 2 MAINTENANCE DOSES
     Route: 042
  2. REMICADE [Suspect]
     Dosage: WK 0,2,6, + 2 MAINTENANCE DOSES
     Route: 042
  3. REMICADE [Suspect]
     Dosage: WK 0,2,6, + 2 MAINTENANCE DOSES
     Route: 042
  4. REMICADE [Suspect]
     Dosage: WK 0,2,6, + 2 MAINTENANCE DOSES
     Route: 042
  5. REMICADE [Suspect]
     Indication: ANKYLOSING SPONDYLITIS
     Dosage: WK 0,2,6, + 2 MAINTENANCE DOSES
     Route: 042
  6. COREG [Concomitant]
  7. MOTRIN [Concomitant]
  8. OXYCONTIN [Concomitant]
  9. VITAMIN D [Concomitant]

REACTIONS (2)
  - HEPATIC NEOPLASM MALIGNANT [None]
  - PANCREATIC CARCINOMA [None]
